FAERS Safety Report 18854641 (Version 2)
Quarter: 2021Q1

REPORT INFORMATION
  Report Type: Spontaneous
  Country: IT (occurrence: IT)
  Receive Date: 20210206
  Receipt Date: 20210218
  Transmission Date: 20210420
  Serious: No
  Sender: FDA-Public Use
  Company Number: IT-ROCHE-2758871

PATIENT
  Age: 61 Year
  Sex: Male
  Weight: 90 kg

DRUGS (5)
  1. TOCILIZUMAB. [Suspect]
     Active Substance: TOCILIZUMAB
     Dosage: MOST RECENT DOSE PRIOR TO ADVERSE EVENT
     Route: 042
     Dates: start: 20200514
  2. TOCILIZUMAB. [Suspect]
     Active Substance: TOCILIZUMAB
     Indication: NEUROMYELITIS OPTICA SPECTRUM DISORDER
     Dosage: MOST RECENT DOSE PRIOR TO ADVERSE EVENT
     Route: 042
     Dates: start: 20200317
  3. GABAPENTIN. [Concomitant]
     Active Substance: GABAPENTIN
     Route: 048
  4. TOCILIZUMAB. [Suspect]
     Active Substance: TOCILIZUMAB
     Dosage: MOST RECENT DOSE PRIOR TO ADVERSE EVENT
     Route: 042
     Dates: start: 20200614
  5. TOCILIZUMAB. [Suspect]
     Active Substance: TOCILIZUMAB
     Dosage: MOST RECENT DOSE PRIOR TO ADVERSE EVENT
     Route: 042
     Dates: start: 20200414

REACTIONS (3)
  - Intentional product use issue [Unknown]
  - Off label use [Unknown]
  - Transaminases increased [Recovered/Resolved]

NARRATIVE: CASE EVENT DATE: 20200608
